FAERS Safety Report 8796681 (Version 1)
Quarter: 2012Q4

REPORT INFORMATION
  Report Type: 
  Country: US (occurrence: US)
  Receive Date: 20120917
  Receipt Date: 20120917
  Transmission Date: 20130627
  Serious: No
  Sender: FDA-Public Use
  Company Number: US-ASTRAZENECA-2012SE69678

PATIENT
  Age: 68 Year
  Sex: Female
  Weight: 77.1 kg

DRUGS (9)
  1. TOPROL XL [Suspect]
     Indication: HYPERTENSION
     Route: 048
  2. ZYRTEC [Suspect]
     Indication: HOUSE DUST ALLERGY
     Route: 065
  3. MAXZIDE [Suspect]
     Indication: HYPERTENSION
     Route: 048
  4. NEURONTIN [Suspect]
     Indication: PAIN
     Route: 065
  5. MORPHINE [Suspect]
     Route: 065
  6. POTASSIUM [Suspect]
     Route: 065
     Dates: start: 2012
  7. LIPITOR [Concomitant]
  8. NORVASC [Concomitant]
     Indication: HYPERTENSION
  9. ZEMPLAR [Concomitant]

REACTIONS (7)
  - Diabetes mellitus [Recovering/Resolving]
  - Blood potassium decreased [Unknown]
  - Kidney small [Unknown]
  - Renal disorder [Unknown]
  - Dehydration [Unknown]
  - Constipation [Unknown]
  - Blood creatinine increased [Unknown]
